FAERS Safety Report 15695373 (Version 1)
Quarter: 2018Q4

REPORT INFORMATION
  Report Type: Report from Study
  Country: BR (occurrence: BR)
  Receive Date: 20181206
  Receipt Date: 20181206
  Transmission Date: 20190205
  Serious: Yes (Other)
  Sender: FDA-Public Use
  Company Number: BR-SEATTLE GENETICS-2018SGN00671

PATIENT
  Age: 31 Year
  Sex: Female

DRUGS (6)
  1. BRENTUXIMAB VEDOTIN-MPI [Suspect]
     Active Substance: BRENTUXIMAB VEDOTIN
     Dosage: UNK, Q21D
     Route: 065
     Dates: start: 201702
  2. BRENTUXIMAB VEDOTIN-MPI [Suspect]
     Active Substance: BRENTUXIMAB VEDOTIN
     Dosage: UNK, Q21D
     Route: 065
     Dates: start: 20180219
  3. FORMOTEROL FUMARATE [Concomitant]
     Active Substance: FORMOTEROL FUMARATE
  4. BRENTUXIMAB VEDOTIN-MPI [Suspect]
     Active Substance: BRENTUXIMAB VEDOTIN
     Indication: HODGKIN^S DISEASE
     Dosage: UNK, Q21D
     Route: 065
     Dates: start: 2014, end: 2014
  5. BUDESONIDE. [Concomitant]
     Active Substance: BUDESONIDE
     Indication: ASTHMA
     Dosage: UNK
  6. BRENTUXIMAB VEDOTIN-MPI [Suspect]
     Active Substance: BRENTUXIMAB VEDOTIN
     Dosage: UNK, Q21D
     Route: 065
     Dates: start: 201602

REACTIONS (5)
  - Immunodeficiency [Recovered/Resolved]
  - Off label use [Recovered/Resolved]
  - Transplant [Unknown]
  - Alopecia [Not Recovered/Not Resolved]
  - Diarrhoea [Recovered/Resolved]

NARRATIVE: CASE EVENT DATE: 20180806
